FAERS Safety Report 7904328-X (Version None)
Quarter: 2011Q4

REPORT INFORMATION
  Report Type: 
  Country: None (occurrence: None)
  Receive Date: 20111109
  Receipt Date: 20111031
  Transmission Date: 20120403
  Serious: Yes (Life-Threatening)
  Sender: FDA-Public Use
  Company Number: JP-ACTELION-A-CH2011-47078

PATIENT
  Sex: Female
  Weight: 38 kg

DRUGS (7)
  1. TRACLEER [Suspect]
     Indication: PULMONARY HYPERTENSION
     Dosage: 125 MG, BID
     Route: 048
     Dates: start: 20100923, end: 20101013
  2. ASPIRIN [Concomitant]
  3. WARFARIN SODIUM [Concomitant]
  4. FUROSEMIDE [Concomitant]
  5. VERAPAMIL HCL [Concomitant]
  6. OXYGEN [Concomitant]
  7. DIGOXIN [Concomitant]

REACTIONS (4)
  - RESPIRATORY DISTRESS [None]
  - PLEURAL EFFUSION [None]
  - CONDITION AGGRAVATED [None]
  - LEFT VENTRICULAR FAILURE [None]
